FAERS Safety Report 4581134-8 (Version None)
Quarter: 2005Q1

REPORT INFORMATION
  Report Type: 
  Country: None (occurrence: None)
  Receive Date: 20050214
  Receipt Date: 20040811
  Transmission Date: 20050727
  Serious: Yes (Other)
  Sender: FDA-Public Use
  Company Number: US-GLAXOSMITHKLINE-A0521928A

PATIENT
  Age: 6 Year
  Sex: Female
  Weight: 22.7 kg

DRUGS (1)
  1. LAMICTAL [Suspect]
     Indication: CYCLOTHYMIC DISORDER
     Route: 048
     Dates: start: 20040621, end: 20040629

REACTIONS (3)
  - BLISTER [None]
  - LIP DISCOLOURATION [None]
  - STEVENS-JOHNSON SYNDROME [None]
